FAERS Safety Report 5154088-3 (Version None)
Quarter: 2006Q4

REPORT INFORMATION
  Report Type: 
  Country: None (occurrence: None)
  Receive Date: 20061116
  Receipt Date: 20061116
  Transmission Date: 20070319
  Serious: Yes (Hospitalization)
  Sender: FDA-Public Use
  Company Number: None

PATIENT
  Sex: Male
  Weight: 80.7403 kg

DRUGS (7)
  1. CETUXIMAB-250 MG/M2 WEEKLY [Suspect]
     Indication: OESOPHAGEAL CARCINOMA
     Dosage: 1285 MG IV
     Route: 042
     Dates: start: 20061103
  2. CETUXIMAB-250 MG/M2 WEEKLY [Suspect]
     Indication: OESOPHAGEAL CARCINOMA
     Dosage: 1285 MG IV
     Route: 042
     Dates: start: 20061107
  3. OXALIPLATIN - 50 MG/M2 WEEKLY [Suspect]
     Indication: OESOPHAGEAL CARCINOMA
     Dosage: 100 MG IV
     Route: 042
     Dates: start: 20061107
  4. XELODA [Suspect]
     Indication: OESOPHAGEAL CARCINOMA
     Dosage: 9000 MG ORAL
     Route: 048
     Dates: start: 20061107, end: 20061109
  5. RADIATION THERPY - 180CGY/DAY MONDAY-FRIDAY [Suspect]
     Indication: OESOPHAGEAL CARCINOMA
     Dosage: 720 CGY
     Dates: start: 20061107, end: 20061110
  6. ZANTAC [Concomitant]
  7. NEXIUM [Concomitant]

REACTIONS (6)
  - DEHYDRATION [None]
  - DYSPHAGIA [None]
  - NAUSEA [None]
  - OESOPHAGEAL OBSTRUCTION [None]
  - SWELLING [None]
  - VOMITING [None]
